FAERS Safety Report 4405406-2 (Version None)
Quarter: 2004Q3

REPORT INFORMATION
  Report Type: 
  Country: None (occurrence: None)
  Receive Date: 20040723
  Receipt Date: 20030808
  Transmission Date: 20050211
  Serious: No
  Sender: FDA-Public Use
  Company Number: US-GLAXOSMITHKLINE-A0420181A

PATIENT
  Age: 75 Year
  Sex: Male

DRUGS (9)
  1. AVANDIA [Suspect]
     Dosage: 8MG PER DAY
     Route: 048
     Dates: start: 20020801
  2. GLYBURIDE [Concomitant]
  3. QUININE [Concomitant]
  4. SPIRONOLACTONE [Concomitant]
  5. SINEMET [Concomitant]
  6. LEVOXYL [Concomitant]
  7. TOPROL-XL [Concomitant]
  8. MIRAPEX [Concomitant]
  9. INDOMETHACIN 25MG CAP [Concomitant]

REACTIONS (1)
  - HYPERGLYCAEMIA [None]
